FAERS Safety Report 5765957-5 (Version None)
Quarter: 2008Q2

REPORT INFORMATION
  Report Type: 
  Country: None (occurrence: None)
  Receive Date: 20080611
  Receipt Date: 20080125
  Transmission Date: 20081010
  Serious: No
  Sender: FDA-Public Use
  Company Number: US-BRISTOL-MYERS SQUIBB COMPANY-14054837

PATIENT
  Age: 86 Year
  Sex: Male
  Weight: 76 kg

DRUGS (14)
  1. SINEMET [Suspect]
     Indication: PARKINSON'S DISEASE
     Dosage: 1 DOSAGE FORM = 1 TABLET. AGAIN RESTARTED ON 10-JAN-2008.
     Dates: end: 20080108
  2. NAMENDA [Suspect]
     Indication: DEMENTIA
     Dosage: 10JAN08-5MGQD PO;27NOV-03DEC07-5MG QD PO;4DEC-10DEC07 5MG BID PO;11DEC-17DEC07-15MG QD PO
     Route: 048
     Dates: start: 20071218, end: 20080108
  3. NAMENDA [Suspect]
     Indication: PARKINSON'S DISEASE
     Dosage: 10JAN08-5MGQD PO;27NOV-03DEC07-5MG QD PO;4DEC-10DEC07 5MG BID PO;11DEC-17DEC07-15MG QD PO
     Route: 048
     Dates: start: 20071218, end: 20080108
  4. PARCOPA [Concomitant]
  5. LEXAPRO [Concomitant]
  6. AZOPT [Concomitant]
  7. XALATAN [Concomitant]
  8. RESTASIS [Concomitant]
  9. AMIODARONE HCL [Concomitant]
  10. POTASSIUM CHLORIDE [Concomitant]
  11. ARICEPT [Concomitant]
  12. MIRALAX [Concomitant]
  13. NEUPRO [Concomitant]
  14. PRAVACHOL [Concomitant]

REACTIONS (2)
  - DYSKINESIA [None]
  - INSOMNIA [None]
